FAERS Safety Report 9860144 (Version 3)
Quarter: 2014Q3

REPORT INFORMATION
  Report Type: Report from Study
  Country: DE (occurrence: DE)
  Receive Date: 20140201
  Receipt Date: 20140704
  Transmission Date: 20150326
  Serious: Yes (Hospitalization)
  Sender: FDA-Public Use
  Company Number: DE-ROCHE-1342806

PATIENT
  Age: 44 Year
  Sex: Female

DRUGS (12)
  1. CALCIVIT D [Concomitant]
  2. FOLIC ACID. [Concomitant]
     Active Substance: FOLIC ACID
  3. RITUXIMAB [Suspect]
     Active Substance: RITUXIMAB
     Indication: RHEUMATOID ARTHRITIS
     Dosage: LAST INFUSION ON 02/JUL/2013, LAST INFUSION PRIOR TO EPISODE OF PSYCHOTIC DISORDER: 28/JAN/2014
     Route: 065
  4. RASILEZ [Concomitant]
     Active Substance: ALISKIREN
  5. CLIOVELLE [Concomitant]
  6. METHOTREXATE [Suspect]
     Active Substance: METHOTREXATE
     Indication: RHEUMATOID ARTHRITIS
     Dosage: WEEKS
     Route: 065
  7. FAMPYRA [Concomitant]
     Active Substance: DALFAMPRIDINE
  8. GABAPENTIN. [Concomitant]
     Active Substance: GABAPENTIN
  9. AMITRIPTYLINE [Concomitant]
     Active Substance: AMITRIPTYLINE
  10. CYMBALTA [Concomitant]
     Active Substance: DULOXETINE HYDROCHLORIDE
  11. SPIRONOLACTON [Concomitant]
     Active Substance: SPIRONOLACTONE
  12. TRAMAL LONG [Concomitant]
     Active Substance: TRAMADOL

REACTIONS (3)
  - Biliary colic [Recovered/Resolved]
  - Cholelithiasis [Unknown]
  - Psychotic disorder [Recovered/Resolved]

NARRATIVE: CASE EVENT DATE: 20131213
